FAERS Safety Report 18926681 (Version 1)
Quarter: 2021Q1

REPORT INFORMATION
  Report Type: Spontaneous
  Country: DE (occurrence: DE)
  Receive Date: 20210223
  Receipt Date: 20210223
  Transmission Date: 20210420
  Serious: Yes (Other)
  Sender: FDA-Public Use
  Company Number: DE-AMGEN-DEUSP2021025937

PATIENT
  Sex: Female

DRUGS (1)
  1. NEUPOGEN [Suspect]
     Active Substance: FILGRASTIM
     Indication: NEUTROPENIA
     Dosage: 5 MICROGRAM/KILOGRAM, QD (FOUR CYCLES)
     Route: 058

REACTIONS (5)
  - Abscess limb [Recovered/Resolved]
  - Seizure [Unknown]
  - Off label use [Unknown]
  - Bone pain [Unknown]
  - Pyrexia [Recovering/Resolving]
